FAERS Safety Report 7817179-1 (Version None)
Quarter: 2011Q4

REPORT INFORMATION
  Report Type: 
  Country: None (occurrence: None)
  Receive Date: 20111017
  Receipt Date: 20111017
  Transmission Date: 20120403
  Serious: Yes (Other)
  Sender: FDA-Public Use
  Company Number: None

PATIENT
  Age: 65 Year
  Sex: Male
  Weight: 78 kg

DRUGS (1)
  1. CRESTOR [Suspect]
     Indication: BLOOD CHOLESTEROL
     Dosage: 40MG
     Dates: start: 20110901, end: 20111001

REACTIONS (4)
  - MYALGIA [None]
  - INSOMNIA [None]
  - TENDON PAIN [None]
  - ARTHRALGIA [None]
